FAERS Safety Report 21053029 (Version 2)
Quarter: 2022Q3

REPORT INFORMATION
  Report Type: Report from Study
  Country: IT (occurrence: IT)
  Receive Date: 20220707
  Receipt Date: 20220712
  Transmission Date: 20221027
  Serious: Yes (Death, Hospitalization)
  Sender: FDA-Public Use
  Company Number: IT-TAKEDA-2022TUS043898

PATIENT
  Sex: Female

DRUGS (1)
  1. HUMAN IMMUNOGLOBULIN G\HYALURONIDASE RECOMBINANT HUMAN [Suspect]
     Active Substance: HUMAN IMMUNOGLOBULIN G\HYALURONIDASE RECOMBINANT HUMAN
     Indication: Primary immunodeficiency syndrome
     Dosage: 15 GRAM, MONTHLY
     Route: 058
     Dates: start: 20220212

REACTIONS (2)
  - Condition aggravated [Fatal]
  - Complication associated with device [Recovering/Resolving]

NARRATIVE: CASE EVENT DATE: 20220622
